FAERS Safety Report 6420429-X (Version None)
Quarter: 2009Q4

REPORT INFORMATION
  Report Type: 
  Country: None (occurrence: None)
  Receive Date: 20091021
  Receipt Date: 20090810
  Transmission Date: 20100525
  Serious: No
  Sender: FDA-Public Use
  Company Number: ALL1-2009-02253

PATIENT
  Age: 6 Year
  Sex: Male
  Weight: 22.7 kg

DRUGS (1)
  1. VYVANSE [Suspect]
     Indication: ATTENTION DEFICIT/HYPERACTIVITY DISORDER
     Dosage: 30 MG, 1X/DAY:QD, ORAL
     Route: 048
     Dates: start: 20090803, end: 20090809

REACTIONS (6)
  - ABDOMINAL DISCOMFORT [None]
  - CHAPPED LIPS [None]
  - DECREASED APPETITE [None]
  - IMPULSIVE BEHAVIOUR [None]
  - MYDRIASIS [None]
  - OBSESSIVE-COMPULSIVE DISORDER [None]
